FAERS Safety Report 21990802 (Version 1)
Quarter: 2023Q1

REPORT INFORMATION
  Report Type: Report from Study
  Country: US (occurrence: US)
  Receive Date: 20230214
  Receipt Date: 20230214
  Transmission Date: 20230417
  Serious: Yes (Other)
  Sender: FDA-Public Use
  Company Number: US-SHIRE-US202018037

PATIENT
  Age: 47 Year
  Sex: Female

DRUGS (1)
  1. HUMAN IMMUNOGLOBULIN G [Suspect]
     Active Substance: HUMAN IMMUNOGLOBULIN G
     Indication: Primary immunodeficiency syndrome
     Dosage: 10 GRAM, 1/WEEK
     Route: 058

REACTIONS (6)
  - COVID-19 [Unknown]
  - Disease progression [Unknown]
  - Raynaud^s phenomenon [Unknown]
  - Dermatitis [Unknown]
  - Skin laceration [Unknown]
  - Insurance issue [Unknown]

NARRATIVE: CASE EVENT DATE: 20230209
